FAERS Safety Report 5939871-6 (Version None)
Quarter: 2008Q4

REPORT INFORMATION
  Report Type: 
  Country: None (occurrence: None)
  Receive Date: 20081030
  Receipt Date: 20081030
  Transmission Date: 20090506
  Serious: Yes (Other)
  Sender: FDA-Public Use
  Company Number: None

PATIENT
  Sex: Male
  Weight: 76.6579 kg

DRUGS (5)
  1. BEVACIZUMAB; GENETECH [Suspect]
     Indication: PANCREATIC CARCINOMA
     Dosage: 10MG/KG = 750MG DAYS 1 + 15 IV
     Route: 042
     Dates: start: 20080220, end: 20081015
  2. HYZAAR [Concomitant]
  3. LOVENOX [Concomitant]
  4. IBUPROFEN TABLETS [Concomitant]
  5. NORVASC [Concomitant]

REACTIONS (3)
  - BLOOD PRESSURE INCREASED [None]
  - CONDITION AGGRAVATED [None]
  - HEADACHE [None]
